FAERS Safety Report 7568050-4 (Version None)
Quarter: 2011Q2

REPORT INFORMATION
  Report Type: 
  Country: None (occurrence: None)
  Receive Date: 20110623
  Receipt Date: 20110617
  Transmission Date: 20111010
  Serious: Yes (Hospitalization)
  Sender: FDA-Public Use
  Company Number: DE-SANOFI-AVENTIS-2011SA027596

PATIENT
  Age: 71 Year
  Sex: Female
  Weight: 74 kg

DRUGS (8)
  1. KEVATRIL [Concomitant]
     Indication: PROPHYLAXIS
     Route: 042
     Dates: start: 20110428, end: 20110428
  2. CYCLOPHOSPHAMIDE [Suspect]
     Route: 041
  3. DOCETAXEL [Suspect]
     Indication: BREAST CANCER
     Route: 041
  4. CYCLOPHOSPHAMIDE [Suspect]
     Indication: BREAST CANCER
     Route: 041
     Dates: start: 20110428, end: 20110428
  5. RAMIPRIL [Concomitant]
     Indication: HYPERTENSION
     Route: 048
     Dates: end: 20110509
  6. DOCETAXEL [Suspect]
     Route: 041
     Dates: start: 20110428, end: 20110428
  7. DEXAMETHASONE [Concomitant]
     Indication: PROPHYLAXIS
     Dosage: IV/PO
     Dates: start: 20110427, end: 20110430
  8. TIMOLOL MALEATE [Concomitant]
     Indication: GLAUCOMA
     Route: 065

REACTIONS (4)
  - DYSPNOEA [None]
  - OEDEMA [None]
  - POLYNEUROPATHY [None]
  - CHRONIC OBSTRUCTIVE PULMONARY DISEASE [None]
